FAERS Safety Report 4837291-9 (Version None)
Quarter: 2005Q4

REPORT INFORMATION
  Report Type: 
  Country: None (occurrence: None)
  Receive Date: 20051122
  Receipt Date: 20051110
  Transmission Date: 20060501
  Serious: Yes (Hospitalization)
  Sender: FDA-Public Use
  Company Number: HQWYE494710NOV05

PATIENT
  Age: 95 Year
  Sex: Female

DRUGS (4)
  1. INIPOMP (PANTOPRAZOLE, INJECTION) [Suspect]
     Indication: GASTRIC ULCER
     Dosage: SEE IMAGE
     Route: 042
     Dates: start: 20050809, end: 20050811
  2. INIPOMP (PANTOPRAZOLE, TABELT, DELAYED RELEASE) [Suspect]
     Indication: GASTRIC ULCER
     Dosage: 80 MG 1X PER 1 DAY, ORAL
     Route: 048
     Dates: start: 20050811
  3. LORAZEPAM [Suspect]
     Dosage: SEE IMAGE
     Route: 048
     Dates: end: 20050808
  4. LORAZEPAM [Suspect]
     Dosage: SEE IMAGE
     Route: 048
     Dates: start: 20050811

REACTIONS (3)
  - CONFUSIONAL STATE [None]
  - DRUG WITHDRAWAL SYNDROME [None]
  - OVERDOSE [None]
